FAERS Safety Report 7647449-1 (Version None)
Quarter: 2011Q3

REPORT INFORMATION
  Report Type: 
  Country: None (occurrence: None)
  Receive Date: 20110801
  Receipt Date: 20110718
  Transmission Date: 20111222
  Serious: Yes (Other)
  Sender: FDA-Public Use
  Company Number: DE-UCBSA-037586

PATIENT
  Age: 26 Year
  Sex: Female

DRUGS (2)
  1. VALPROATE SODIUM [Suspect]
     Indication: EPILEPSY
     Dosage: 1300 MG DAILY
     Dates: end: 20050101
  2. LEVETIRACETAM [Suspect]
     Indication: EPILEPSY
     Dosage: 3000 MG DAILY
     Dates: start: 20030101

REACTIONS (2)
  - GRAND MAL CONVULSION [None]
  - IMPULSE-CONTROL DISORDER [None]
